FAERS Safety Report 13451394 (Version 1)
Quarter: 2017Q2

REPORT INFORMATION
  Report Type: Spontaneous
  Country: US (occurrence: US)
  Receive Date: 20170417
  Receipt Date: 20170417
  Transmission Date: 20170830
  Serious: No
  Sender: FDA-Public Use
  Company Number: None

PATIENT
  Age: 71 Year
  Sex: Female
  Weight: 72 kg

DRUGS (3)
  1. METROPOL [Concomitant]
  2. PAZEO [Suspect]
     Active Substance: OLOPATADINE HYDROCHLORIDE
     Indication: DRY EYE
  3. FLECANIDE [Concomitant]
     Active Substance: FLECAINIDE

REACTIONS (2)
  - Vision blurred [None]
  - Frustration tolerance decreased [None]

NARRATIVE: CASE EVENT DATE: 20170308
